FAERS Safety Report 5259663-3 (Version None)
Quarter: 2007Q1

REPORT INFORMATION
  Report Type: 
  Country: None (occurrence: None)
  Receive Date: 20070307
  Receipt Date: 20070307
  Transmission Date: 20070707
  Serious: Yes (Death, Hospitalization)
  Sender: FDA-Public Use
  Company Number: None

PATIENT
  Sex: Female
  Weight: 74 kg

DRUGS (6)
  1. FLUDARABINE PHOSPHATE [Suspect]
     Dosage: 220 MG
     Dates: end: 20060127
  2. RITUXIMAB (MOAB C2B8 ANTI CD20, CHIMERIC) [Suspect]
     Dosage: 660 MG
     Dates: start: 20060123, end: 20060123
  3. PREDNISONE [Concomitant]
  4. LEUCOVORIN CALCIUM [Concomitant]
  5. PYRIMETHAMINE TAB [Concomitant]
  6. SULFADIAZINE [Concomitant]

REACTIONS (7)
  - BRAIN OEDEMA [None]
  - CEREBRAL TOXOPLASMOSIS [None]
  - CEREBROVASCULAR ACCIDENT [None]
  - ENTEROCOCCAL INFECTION [None]
  - MYOCARDIAL INFARCTION [None]
  - NEUTROPENIA [None]
  - RENAL FAILURE ACUTE [None]
